FAERS Safety Report 22108815 (Version 1)
Quarter: 2023Q1

REPORT INFORMATION
  Report Type: Spontaneous
  Country: US (occurrence: None)
  Receive Date: 20230316
  Receipt Date: 20230316
  Transmission Date: 20230418
  Serious: Yes (Disabling)
  Sender: FDA-Public Use
  Company Number: None

PATIENT
  Age: 27 Year
  Sex: Male
  Weight: 74.25 kg

DRUGS (4)
  1. FINASTERIDE [Suspect]
     Active Substance: FINASTERIDE
     Indication: Alopecia
     Route: 048
     Dates: start: 20220411, end: 20221206
  2. LEVOTHYROXINE [Concomitant]
     Active Substance: LEVOTHYROXINE
  3. REXULTI [Concomitant]
     Active Substance: BREXPIPRAZOLE
  4. VITAMIN D [Concomitant]
     Active Substance: VITAMIN D NOS

REACTIONS (6)
  - Testicular disorder [None]
  - Paraesthesia [None]
  - Insomnia [None]
  - Sexual dysfunction [None]
  - Peyronie^s disease [None]
  - Anxiety [None]

NARRATIVE: CASE EVENT DATE: 20221211
